FAERS Safety Report 6589646-2 (Version None)
Quarter: 2010Q1

REPORT INFORMATION
  Report Type: 
  Country: None (occurrence: None)
  Receive Date: 20100212
  Receipt Date: 20100128
  Transmission Date: 20100710
  Serious: Yes (Other)
  Sender: FDA-Public Use
  Company Number: 10-000165

PATIENT
  Age: 39 Year
  Sex: Female
  Weight: 63.5 kg

DRUGS (3)
  1. LOESTRIN 24 FE [Suspect]
     Indication: CONTRACEPTION
     Dosage: 20/1000 UG TABLET DAILY, ORAL
     Route: 048
     Dates: start: 20090105, end: 20091001
  2. ZYPREXA [Concomitant]
  3. LEXAPRO [Concomitant]

REACTIONS (3)
  - HYPOAESTHESIA ORAL [None]
  - TRANSIENT ISCHAEMIC ATTACK [None]
  - TREMOR [None]
